FAERS Safety Report 7903138-7 (Version None)
Quarter: 2011Q4

REPORT INFORMATION
  Report Type: 
  Country: None (occurrence: None)
  Receive Date: 20111107
  Receipt Date: 20111026
  Transmission Date: 20120403
  Serious: Yes (Other)
  Sender: FDA-Public Use
  Company Number: 2011SP045378

PATIENT
  Sex: Male

DRUGS (6)
  1. RIBAVIRIN [Suspect]
     Indication: HEPATITIS C
     Dosage: 600 MG;BID
     Dates: start: 20110114
  2. PEG-INTRON [Suspect]
     Indication: HEPATITIS C
     Dosage: 120 MCG;QW;SC
     Route: 058
     Dates: start: 20110114
  3. FISH OIL [Concomitant]
  4. FLEXERIL [Concomitant]
  5. LISINOPRIL AND HYDROCHLOROTHIAZIDE [Concomitant]
  6. M.V.I. [Concomitant]

REACTIONS (8)
  - EXCORIATION [None]
  - INJECTION SITE HAEMORRHAGE [None]
  - CONCUSSION [None]
  - FALL [None]
  - WRIST FRACTURE [None]
  - INJECTION SITE MASS [None]
  - JOINT DISLOCATION [None]
  - LACERATION [None]
